FAERS Safety Report 18564760 (Version 3)
Quarter: 2021Q1

REPORT INFORMATION
  Report Type: Spontaneous
  Country: JP (occurrence: JP)
  Receive Date: 20201201
  Receipt Date: 20210105
  Transmission Date: 20210419
  Serious: Yes (Other)
  Sender: FDA-Public Use
  Company Number: JP-INCYTE CORPORATION-2020IN011862

PATIENT

DRUGS (2)
  1. JAKAVI [Suspect]
     Active Substance: RUXOLITINIB
     Indication: MYELOFIBROSIS
     Dosage: UNK
     Route: 065
     Dates: start: 201812
  2. JAKAVI [Suspect]
     Active Substance: RUXOLITINIB
     Indication: SYSTEMIC MASTOCYTOSIS

REACTIONS (4)
  - Skin lesion [Unknown]
  - Myelofibrosis [Unknown]
  - Urticaria pigmentosa [Unknown]
  - Systemic mastocytosis [Unknown]
